FAERS Safety Report 8400044-9 (Version None)
Quarter: 2012Q2

REPORT INFORMATION
  Report Type: 
  Country: None (occurrence: None)
  Receive Date: 20120525
  Receipt Date: 20120512
  Transmission Date: 20120825
  Serious: Yes (Hospitalization)
  Sender: FDA-Public Use
  Company Number: 2012AP001433

PATIENT
  Age: 44 Year
  Sex: Male

DRUGS (3)
  1. QUETIAPINE FUMARATE [Suspect]
     Indication: ANXIETY
     Dosage: 50 MG;QD ; 25 MG;QD
  2. APREPITANT [Suspect]
     Indication: ANTIEMETIC SUPPORTIVE CARE
     Dosage: 125 MG;Q3W ; 80 MG;Q3W ; 80 MG;Q3W
  3. CISPLATIN [Concomitant]

REACTIONS (5)
  - DRUG LEVEL INCREASED [None]
  - DRUG INTERACTION [None]
  - SOMNOLENCE [None]
  - RENAL IMPAIRMENT [None]
  - DEHYDRATION [None]
